FAERS Safety Report 15494585 (Version 1)
Quarter: 2018Q4

REPORT INFORMATION
  Report Type: Spontaneous
  Country: FR (occurrence: FR)
  Receive Date: 20181012
  Receipt Date: 20181012
  Transmission Date: 20190205
  Serious: Yes (Death, Other)
  Sender: FDA-Public Use
  Company Number: FR-BRISTOL-MYERS SQUIBB COMPANY-BMS-2018-092378

PATIENT
  Age: 30 Year
  Sex: Male

DRUGS (4)
  1. PREDNISONE. [Suspect]
     Active Substance: PREDNISONE
     Indication: POLYARTERITIS NODOSA
     Dosage: 30 MG PER DAY
     Route: 048
     Dates: start: 20180602, end: 20180723
  2. CANDESARTAN MYLAN [Suspect]
     Active Substance: CANDESARTAN
     Indication: MALIGNANT HYPERTENSION
     Dosage: 2 DF, PER DAY
     Route: 048
     Dates: start: 20180602, end: 20180717
  3. COUMADINE [Suspect]
     Active Substance: WARFARIN SODIUM
     Indication: POLYARTERITIS NODOSA
     Dosage: 4 MG, PER DAY
     Route: 048
     Dates: start: 20180602, end: 20180722
  4. PANTOPRAZOLE [Suspect]
     Active Substance: PANTOPRAZOLE
     Indication: PROPHYLAXIS AGAINST GASTROINTESTINAL ULCER
     Dosage: 20 MG PER DAY
     Route: 048
     Dates: start: 20180602, end: 20180722

REACTIONS (2)
  - Toxic epidermal necrolysis [Fatal]
  - Intestinal perforation [Fatal]

NARRATIVE: CASE EVENT DATE: 20180713
